FAERS Safety Report 7417634-2 (Version None)
Quarter: 2011Q2

REPORT INFORMATION
  Report Type: 
  Country: None (occurrence: None)
  Receive Date: 20110415
  Receipt Date: 20110405
  Transmission Date: 20111010
  Serious: No
  Sender: FDA-Public Use
  Company Number: PHHY2011FR15366

PATIENT
  Sex: Male
  Weight: 46 kg

DRUGS (4)
  1. TEGRETOL [Suspect]
     Indication: ABNORMAL BEHAVIOUR
     Dosage: 100 MG, QD
     Dates: start: 20090916, end: 20110113
  2. DEPAKENE [Concomitant]
     Indication: EPILEPSY
     Dosage: 1 DF, BID
  3. TEGRETOL [Suspect]
     Dosage: 200 MG, BID
     Dates: start: 20110113
  4. LOXAPINE [Concomitant]
     Indication: AGITATION
     Dosage: 5 DRP, UNK

REACTIONS (5)
  - FEELING ABNORMAL [None]
  - THIRST [None]
  - TANNING [None]
  - FATIGUE [None]
  - EYES SUNKEN [None]
